FAERS Safety Report 7067804-0 (Version None)
Quarter: 2010Q4

REPORT INFORMATION
  Report Type: 
  Country: None (occurrence: None)
  Receive Date: 20101028
  Receipt Date: 20101018
  Transmission Date: 20110411
  Serious: Yes (Hospitalization)
  Sender: FDA-Public Use
  Company Number: PHHY2010ZA70216

PATIENT
  Age: 30 Year
  Sex: Female

DRUGS (2)
  1. TEGRETOL [Suspect]
  2. KEPPRA [Suspect]
     Indication: PARTIAL SEIZURES

REACTIONS (4)
  - ABDOMINAL DISCOMFORT [None]
  - ABDOMINAL DISTENSION [None]
  - ABDOMINAL PAIN [None]
  - NAUSEA [None]
